FAERS Safety Report 9328582 (Version 1)
Quarter: 2013Q2

REPORT INFORMATION
  Report Type: Spontaneous
  Country: US (occurrence: US)
  Receive Date: 20130604
  Receipt Date: 20130604
  Transmission Date: 20140414
  Serious: No
  Sender: FDA-Public Use
  Company Number: US-SANOFI-AVENTIS-2013SA007730

PATIENT
  Age: 71 Year
  Sex: Female

DRUGS (5)
  1. SOLOSTAR [Suspect]
     Indication: TYPE 2 DIABETES MELLITUS
  2. LANTUS SOLOSTAR [Suspect]
     Indication: TYPE 2 DIABETES MELLITUS
     Dosage: DOSE:30 UNIT(S)
     Route: 051
  3. AMARYL [Suspect]
  4. METFORMIN [Concomitant]
  5. GLUCAGON [Concomitant]

REACTIONS (2)
  - Blood glucose abnormal [Unknown]
  - Speech disorder [Unknown]
